FAERS Safety Report 4783985-3 (Version None)
Quarter: 2005Q3

REPORT INFORMATION
  Report Type: 
  Country: None (occurrence: None)
  Receive Date: 20050927
  Receipt Date: 20050808
  Transmission Date: 20060218
  Serious: No
  Sender: FDA-Public Use
  Company Number: USA0508104804

PATIENT
  Age: 23 Year
  Sex: Female
  Weight: 50 kg

DRUGS (4)
  1. STRATTERA [Suspect]
     Indication: ATTENTION DEFICIT/HYPERACTIVITY DISORDER
     Dosage: 40 MG DAY
     Dates: start: 20050804
  2. CYMBALTA [Suspect]
     Indication: DEPRESSION
     Dosage: 60 MG DAY
  3. KLONOPIN [Concomitant]
  4. TRAZODONE HCL [Concomitant]

REACTIONS (9)
  - BALANCE DISORDER [None]
  - CRYING [None]
  - HEADACHE [None]
  - HEART RATE INCREASED [None]
  - HYPERHIDROSIS [None]
  - MEMORY IMPAIRMENT [None]
  - NIGHTMARE [None]
  - SOMNOLENCE [None]
  - VISION BLURRED [None]
